FAERS Safety Report 24844705 (Version 2)
Quarter: 2025Q1

REPORT INFORMATION
  Report Type: Other
  Country: US (occurrence: US)
  Receive Date: 20250115
  Receipt Date: 20250124
  Transmission Date: 20250409
  Serious: No
  Sender: TRAVERE THERAPEUTICS
  Company Number: US-TRAVERE-2024TVT01263

PATIENT
  Age: 39 Year
  Sex: Male

DRUGS (2)
  1. FILSPARI [Suspect]
     Active Substance: SPARSENTAN
     Indication: Haematuria
     Route: 048
     Dates: start: 20241109
  2. PREDNISONE [Concomitant]
     Active Substance: PREDNISONE

REACTIONS (3)
  - Nightmare [Recovering/Resolving]
  - Product use in unapproved indication [Unknown]
  - Abnormal dreams [Recovering/Resolving]

NARRATIVE: CASE EVENT DATE: 20241109
